FAERS Safety Report 9357460 (Version 2)
Quarter: 2013Q4

REPORT INFORMATION
  Report Type: Report from Study
  Country: CA (occurrence: CA)
  Receive Date: 20130620
  Receipt Date: 20131226
  Transmission Date: 20140711
  Serious: No
  Sender: FDA-Public Use
  Company Number: PHHY2013CA038941

PATIENT
  Sex: Female

DRUGS (4)
  1. TASIGNA [Suspect]
     Indication: CHRONIC MYELOID LEUKAEMIA
     Dosage: 300 MG, BID
     Route: 048
     Dates: start: 20130406
  2. CABERGOLINE [Concomitant]
  3. CALCIFEROL VIT D [Concomitant]
  4. TUMS [Concomitant]

REACTIONS (12)
  - Tooth infection [Recovered/Resolved]
  - Tooth injury [Unknown]
  - Palpitations [Recovering/Resolving]
  - Fatigue [Recovering/Resolving]
  - Headache [Recovering/Resolving]
  - Nasopharyngitis [Unknown]
  - Cough [Unknown]
  - Nausea [Unknown]
  - Dysgeusia [Unknown]
  - Muscle fatigue [Unknown]
  - Muscular weakness [Unknown]
  - Musculoskeletal chest pain [Unknown]
